FAERS Safety Report 17836270 (Version 1)
Quarter: 2020Q2

REPORT INFORMATION
  Report Type: Spontaneous
  Country: CA (occurrence: CA)
  Receive Date: 20200529
  Receipt Date: 20200529
  Transmission Date: 20200714
  Serious: Yes (Death)
  Sender: FDA-Public Use
  Company Number: CA-ROCHE-2608449

PATIENT
  Age: 51 Year
  Sex: Male
  Weight: 127 kg

DRUGS (22)
  1. METHOTREXATE. [Suspect]
     Active Substance: METHOTREXATE
     Indication: PRODUCT USED FOR UNKNOWN INDICATION
     Route: 065
  2. CYCLOPHOSPHAMIDE. [Suspect]
     Active Substance: CYCLOPHOSPHAMIDE
     Indication: PRODUCT USED FOR UNKNOWN INDICATION
     Route: 048
  3. TRAZODONE [Concomitant]
     Active Substance: TRAZODONE HYDROCHLORIDE
  4. FENTANYL. [Concomitant]
     Active Substance: FENTANYL
  5. MYCOPHENOLATE MOFETIL. [Concomitant]
     Active Substance: MYCOPHENOLATE MOFETIL
  6. DIPHENHYDRAMINE. [Concomitant]
     Active Substance: DIPHENHYDRAMINE
  7. LORAZEPAM. [Concomitant]
     Active Substance: LORAZEPAM
  8. POTASSIUM CHLORIDE. [Concomitant]
     Active Substance: POTASSIUM CHLORIDE
  9. METFORMIN [Suspect]
     Active Substance: METFORMIN HYDROCHLORIDE
     Indication: PRODUCT USED FOR UNKNOWN INDICATION
     Route: 048
  10. DOXAZOSIN [Concomitant]
     Active Substance: DOXAZOSIN MESYLATE
  11. METHYLPREDNISOLONE. [Concomitant]
     Active Substance: METHYLPREDNISOLONE
  12. ROSUVASTATIN. [Concomitant]
     Active Substance: ROSUVASTATIN
  13. ONDANSETRON [Concomitant]
     Active Substance: ONDANSETRON
  14. ACETAMINOPHEN. [Concomitant]
     Active Substance: ACETAMINOPHEN
  15. ACETYLSALICYLIC ACID [Concomitant]
     Active Substance: ASPIRIN
  16. CITALOPRAM [Concomitant]
     Active Substance: CITALOPRAM HYDROBROMIDE
  17. PANTOPRAZOLE [Concomitant]
     Active Substance: PANTOPRAZOLE
  18. CYCLOPHOSPHAMIDE. [Suspect]
     Active Substance: CYCLOPHOSPHAMIDE
     Route: 042
  19. FUROSEMIDE. [Concomitant]
     Active Substance: FUROSEMIDE
  20. LEFLUNOMIDE. [Concomitant]
     Active Substance: LEFLUNOMIDE
  21. RITUXIMAB. [Suspect]
     Active Substance: RITUXIMAB
     Indication: GRANULOMATOSIS WITH POLYANGIITIS
     Route: 042
  22. CLOPIDOGREL [Concomitant]
     Active Substance: CLOPIDOGREL BISULFATE

REACTIONS (36)
  - Arteriosclerosis [Fatal]
  - Malignant melanoma in situ [Fatal]
  - Pyrexia [Fatal]
  - Fatigue [Fatal]
  - Interstitial lung disease [Fatal]
  - Joint stiffness [Fatal]
  - Steroid diabetes [Fatal]
  - Weight decreased [Fatal]
  - Alveolitis [Fatal]
  - Disease recurrence [Fatal]
  - Proteinuria [Fatal]
  - Rash [Fatal]
  - Neutropenia [Fatal]
  - Intervertebral disc protrusion [Fatal]
  - Pneumonia [Fatal]
  - Vomiting [Fatal]
  - Antineutrophil cytoplasmic antibody positive [Fatal]
  - Back pain [Fatal]
  - Dyspnoea [Fatal]
  - Granulomatosis with polyangiitis [Fatal]
  - Hypoaesthesia [Fatal]
  - Neoplasm [Fatal]
  - Radiculopathy [Fatal]
  - Acne [Fatal]
  - C-reactive protein increased [Fatal]
  - Nasopharyngitis [Fatal]
  - Weight increased [Fatal]
  - Arthralgia [Fatal]
  - Nausea [Fatal]
  - Neutrophil count decreased [Fatal]
  - Palpitations [Fatal]
  - Blood creatinine increased [Fatal]
  - Dizziness [Fatal]
  - Drug hypersensitivity [Fatal]
  - Gout [Fatal]
  - Pulmonary granuloma [Fatal]
